FAERS Safety Report 19566906 (Version 2)
Quarter: 2021Q3

REPORT INFORMATION
  Report Type: Spontaneous
  Country: CA (occurrence: CA)
  Receive Date: 20210716
  Receipt Date: 20210824
  Transmission Date: 20211014
  Serious: Yes (Other)
  Sender: FDA-Public Use
  Company Number: CA-SUN PHARMACEUTICAL INDUSTRIES LTD-2021R1-283040

PATIENT
  Age: 62 Year
  Sex: Female

DRUGS (4)
  1. ODOMZO [Suspect]
     Active Substance: SONIDEGIB
     Dosage: 400 MILLIGRAM, QD
     Route: 048
     Dates: start: 20210319, end: 20210621
  2. ODOMZO [Suspect]
     Active Substance: SONIDEGIB
     Indication: MEDULLOBLASTOMA
     Dosage: 800 MILLIGRAM, QD (AT 2 PM ON EMPTY STOMACH)
     Route: 048
     Dates: start: 20210319
  3. WELLBUTRIN [Concomitant]
     Active Substance: BUPROPION HYDROCHLORIDE
     Indication: PRODUCT USED FOR UNKNOWN INDICATION
     Dosage: IN PM QHS
     Route: 065
  4. ODOMZO [Suspect]
     Active Substance: SONIDEGIB
     Dosage: 600 MILLIGRAM, QD
     Route: 048
     Dates: start: 20210319

REACTIONS (17)
  - Muscle spasms [Recovered/Resolved]
  - Muscular weakness [Unknown]
  - Reflux gastritis [Unknown]
  - Limb discomfort [Unknown]
  - Gait disturbance [Unknown]
  - Condition aggravated [Recovered/Resolved]
  - Balance disorder [Unknown]
  - Asthenia [Unknown]
  - Back pain [Unknown]
  - Ageusia [Unknown]
  - Dyspepsia [Recovered/Resolved]
  - Contusion [Unknown]
  - Fatigue [Recovered/Resolved]
  - Dizziness [Unknown]
  - Off label use [Unknown]
  - Fall [Unknown]
  - Myalgia [Unknown]

NARRATIVE: CASE EVENT DATE: 20210326
